FAERS Safety Report 6437745-8 (Version None)
Quarter: 2009Q4

REPORT INFORMATION
  Report Type: 
  Country: None (occurrence: None)
  Receive Date: 20091112
  Receipt Date: 20091105
  Transmission Date: 20100525
  Serious: Yes (Other)
  Sender: FDA-Public Use
  Company Number: PH-PFIZER INC-2009294577

PATIENT
  Age: 15 Year
  Sex: Female

DRUGS (2)
  1. MEDROL [Suspect]
     Dosage: 16 MG, UNK
  2. MYCOPHENOLATE MOFETIL [Concomitant]

REACTIONS (2)
  - FACE OEDEMA [None]
  - HYPOKALAEMIA [None]
